FAERS Safety Report 9328260 (Version 1)
Quarter: 2013Q2

REPORT INFORMATION
  Report Type: Spontaneous
  Country: US (occurrence: US)
  Receive Date: 20130604
  Receipt Date: 20130604
  Transmission Date: 20140414
  Serious: No
  Sender: FDA-Public Use
  Company Number: US-SANOFI-AVENTIS-2012SA039961

PATIENT
  Sex: Female

DRUGS (4)
  1. LANTUS [Suspect]
     Indication: TYPE 2 DIABETES MELLITUS
     Dosage: 44 UNITS SLIDING SCALE DOSE:44 UNIT(S)
     Route: 058
     Dates: start: 201205
  2. SOLOSTAR [Suspect]
     Indication: TYPE 2 DIABETES MELLITUS
     Dates: start: 201205
  3. GLUCOCORTICOIDS [Suspect]
     Route: 065
  4. GLUCOCORTICOIDS [Suspect]
     Route: 065

REACTIONS (2)
  - Oral mucosal blistering [Not Recovered/Not Resolved]
  - Speech disorder [Not Recovered/Not Resolved]
